FAERS Safety Report 4852723-8 (Version None)
Quarter: 2005Q4

REPORT INFORMATION
  Report Type: 
  Country: None (occurrence: None)
  Receive Date: 20051213
  Receipt Date: 20051203
  Transmission Date: 20060501
  Serious: Yes (Hospitalization, Other)
  Sender: FDA-Public Use
  Company Number: PHNU2005DE04000

PATIENT
  Sex: Female

DRUGS (12)
  1. CLOZARIL [Suspect]
     Indication: PSYCHOTIC DISORDER
     Dosage: UNK, UNK
     Route: 048
     Dates: end: 20051114
  2. BELOC ZOK [Concomitant]
  3. MELPERONE [Concomitant]
  4. OXAZEPAM [Concomitant]
  5. EUTHYROX [Concomitant]
  6. DETROL [Concomitant]
  7. CALCIUM GLUCONATE [Concomitant]
  8. LORAZEPAM [Concomitant]
  9. CLINDAMYCIN [Suspect]
     Indication: PROPHYLAXIS
     Dates: start: 20051101
  10. STAPHYLEX [Suspect]
     Indication: PROPHYLAXIS
     Dates: start: 20051101
  11. PANTOZOL [Concomitant]
  12. CORANGIN [Concomitant]

REACTIONS (3)
  - LEUKOPENIA [None]
  - SURGERY [None]
  - THYROID OPERATION [None]
